FAERS Safety Report 21121738 (Version 2)
Quarter: 2022Q3

REPORT INFORMATION
  Report Type: Spontaneous
  Country: US (occurrence: US)
  Receive Date: 20220722
  Receipt Date: 20220725
  Transmission Date: 20221027
  Serious: No
  Sender: FDA-Public Use
  Company Number: US-PFIZER INC-202200991567

PATIENT
  Age: 84 Year
  Sex: Female

DRUGS (3)
  1. LORAZEPAM [Suspect]
     Active Substance: LORAZEPAM
     Dosage: 1 MG
  2. ATIVAN [Suspect]
     Active Substance: LORAZEPAM
     Dosage: UNK, (FOUR TIMES A DAY )
  3. BENADRYL [Suspect]
     Active Substance: DIPHENHYDRAMINE HYDROCHLORIDE
     Dosage: UNK, (16 BENADRYL SHE WAS TAKING PER DAY/I WAS TAKING 4 BABY BENADRYL^S 2.5 BABY ONES)

REACTIONS (5)
  - Nightmare [Unknown]
  - Hyperhidrosis [Unknown]
  - Chills [Unknown]
  - Drug hypersensitivity [Unknown]
  - Withdrawal syndrome [Unknown]
